FAERS Safety Report 16558721 (Version 2)
Quarter: 2019Q3

REPORT INFORMATION
  Report Type: Spontaneous
  Country: AU (occurrence: AU)
  Receive Date: 20190711
  Receipt Date: 20190802
  Transmission Date: 20191004
  Serious: Yes (Hospitalization)
  Sender: FDA-Public Use
  Company Number: AU-JNJFOC-20190635643

PATIENT
  Age: 7 Year
  Sex: Female

DRUGS (2)
  1. HALDOL DECANOATE [Suspect]
     Active Substance: HALOPERIDOL DECANOATE
     Indication: BEHAVIOUR DISORDER
     Route: 048
     Dates: start: 2016, end: 201808
  2. HALDOL DECANOATE [Suspect]
     Active Substance: HALOPERIDOL DECANOATE
     Indication: AUTISM SPECTRUM DISORDER

REACTIONS (5)
  - Withdrawal syndrome [Unknown]
  - Agitation [Unknown]
  - Hallucination, visual [Unknown]
  - Dyskinesia [Unknown]
  - Psychotic disorder [Recovering/Resolving]

NARRATIVE: CASE EVENT DATE: 20180909
